FAERS Safety Report 8480890-6 (Version None)
Quarter: 2012Q2

REPORT INFORMATION
  Report Type: 
  Country: None (occurrence: None)
  Receive Date: 20120625
  Receipt Date: 20120607
  Transmission Date: 20120825
  Serious: Yes (Other)
  Sender: FDA-Public Use
  Company Number: JP-2011-11605

PATIENT
  Age: 51 Year
  Sex: Male
  Weight: 65 kg

DRUGS (9)
  1. SAMSCA [Suspect]
     Indication: CARDIAC FAILURE
     Dosage: 7.5 MG MILLIGRAM(S), QD, ORAL
     Route: 048
     Dates: start: 20110922
  2. SAMSCA [Suspect]
     Indication: CONGESTIVE CARDIOMYOPATHY
     Dosage: 7.5 MG MILLIGRAM(S), QD, ORAL
     Route: 048
     Dates: start: 20110922
  3. BEPRICOR (BEPRIDIL HYDROCHLORIDE HYDRATE) TABLET [Concomitant]
  4. PIMOBENDAN (PIMOBENDAN) TABLET [Concomitant]
  5. LASIX [Concomitant]
  6. CARVEDILOL [Concomitant]
  7. WARFARIN SODIUM [Concomitant]
  8. HANP (CARPERITIDE) INJECTION [Suspect]
     Dosage: 0.0125 MCGLKGLMIN, IV DRIP
     Route: 041
     Dates: end: 20110922
  9. TRICHLORMETHIAZIDE [Concomitant]

REACTIONS (2)
  - VENTRICULAR TACHYCARDIA [None]
  - HYPOKALAEMIA [None]
